FAERS Safety Report 21831672 (Version 1)
Quarter: 2023Q1

REPORT INFORMATION
  Report Type: Spontaneous
  Country: US (occurrence: None)
  Receive Date: 20230106
  Receipt Date: 20230106
  Transmission Date: 20230418
  Serious: No
  Sender: FDA-Public Use
  Company Number: None

PATIENT
  Sex: 0

DRUGS (2)
  1. CROMOLYN SODIUM [Suspect]
     Active Substance: CROMOLYN SODIUM
  2. BRIMONIDINE [Suspect]
     Active Substance: BRIMONIDINE TARTRATE

REACTIONS (1)
  - Glaucoma [None]
